FAERS Safety Report 4555860-0 (Version None)
Quarter: 2005Q1

REPORT INFORMATION
  Report Type: 
  Country: None (occurrence: None)
  Receive Date: 20050111
  Receipt Date: 20041119
  Transmission Date: 20050727
  Serious: No
  Sender: FDA-Public Use
  Company Number: 2004S1000263

PATIENT
  Age: 23 Year
  Sex: Male
  Weight: 63.6 kg

DRUGS (5)
  1. CUBICIN [Suspect]
     Indication: OSTEOMYELITIS
     Dosage: 380 MG;Q24H;IV
     Route: 042
     Dates: start: 20041014, end: 20041125
  2. CUBICIN [Suspect]
     Indication: STAPHYLOCOCCAL INFECTION
     Dosage: 380 MG;Q24H;IV
     Route: 042
     Dates: start: 20041014, end: 20041125
  3. ROCEPHIN [Concomitant]
  4. FLAGYL [Concomitant]
  5. HEPARIN [Concomitant]

REACTIONS (1)
  - BLOOD CREATINE PHOSPHOKINASE INCREASED [None]
